FAERS Safety Report 18478252 (Version 2)
Quarter: 2025Q2

REPORT INFORMATION
  Report Type: Spontaneous
  Country: US (occurrence: US)
  Receive Date: 20201109
  Receipt Date: 20250629
  Transmission Date: 20250716
  Serious: Yes (Life-Threatening, Hospitalization, Other)
  Sender: AUROBINDO
  Company Number: US-MLMSERVICE-20201021-2538857-1

PATIENT
  Age: 25 Year
  Sex: Female

DRUGS (1)
  1. METHOTREXATE [Suspect]
     Active Substance: METHOTREXATE
     Indication: Uveitis
     Route: 065

REACTIONS (2)
  - Burkitt^s lymphoma [Unknown]
  - Epstein-Barr virus associated lymphoma [Unknown]
